FAERS Safety Report 15783506 (Version 1)
Quarter: 2019Q1

REPORT INFORMATION
  Report Type: Spontaneous
  Country: GB (occurrence: GB)
  Receive Date: 20190102
  Receipt Date: 20190102
  Transmission Date: 20190417
  Serious: Yes (Other)
  Sender: FDA-Public Use
  Company Number: GB-MYLANLABS-2018M1097243

PATIENT
  Age: 41 Year
  Sex: Female
  Weight: 63.5 kg

DRUGS (1)
  1. LEVONORGESTREL. [Suspect]
     Active Substance: LEVONORGESTREL
     Indication: CONTRACEPTION
     Dosage: UNK
     Route: 048
     Dates: start: 201702, end: 201703

REACTIONS (3)
  - Anxiety [Unknown]
  - Depression suicidal [Recovered/Resolved]
  - Suicidal ideation [Unknown]

NARRATIVE: CASE EVENT DATE: 201702
